FAERS Safety Report 25859024 (Version 3)
Quarter: 2025Q4

REPORT INFORMATION
  Report Type: Spontaneous
  Country: EU (occurrence: EU)
  Receive Date: 20250929
  Receipt Date: 20251011
  Transmission Date: 20260117
  Serious: Yes (Life-Threatening, Hospitalization)
  Sender: JOHNSON AND JOHNSON
  Company Number: EU-JNJFOC-20250943515

PATIENT
  Age: 31 Year
  Sex: Female

DRUGS (19)
  1. SPRAVATO [Suspect]
     Active Substance: ESKETAMINE
     Indication: Depression
     Dosage: SECOND EMERGENCY PROTOCOL JAN/2025
     Route: 045
     Dates: start: 2024
  2. SPRAVATO [Suspect]
     Active Substance: ESKETAMINE
     Route: 045
     Dates: start: 202501
  3. SPRAVATO [Suspect]
     Active Substance: ESKETAMINE
     Route: 045
     Dates: start: 20250918
  4. Liothyroxine [Concomitant]
     Indication: Product used for unknown indication
     Dosage: 0.25+0.25+0
     Route: 048
  5. Bisiprolol [Concomitant]
     Indication: Product used for unknown indication
     Dosage: 2.5 MF2X2
  6. DESOGESTREL [Concomitant]
     Active Substance: DESOGESTREL
     Indication: Product used for unknown indication
     Dosage: 2 TBL
     Route: 048
  7. FLORINEF ACETATE [Concomitant]
     Active Substance: FLUDROCORTISONE ACETATE
     Indication: Product used for unknown indication
     Dosage: 1.5TBLX1
     Route: 048
  8. Hyrdocortison [Concomitant]
     Indication: Product used for unknown indication
     Dosage: 10MG 20MG+15MG+5MG
  9. LEVOTHYROXINE [Concomitant]
     Active Substance: LEVOTHYROXINE
     Indication: Product used for unknown indication
     Dosage: X1
  10. LEVOTHYROXINE [Concomitant]
     Active Substance: LEVOTHYROXINE
     Dosage: X1
  11. LEVOMEPROMAZINE [Concomitant]
     Active Substance: LEVOMEPROMAZINE
     Indication: Product used for unknown indication
     Dosage: ILTA
     Route: 048
  12. Ariprizol [Concomitant]
     Indication: Product used for unknown indication
  13. MELATONIN [Concomitant]
     Active Substance: MELATONIN
     Indication: Product used for unknown indication
     Dosage: 2TBL
     Route: 048
  14. Brintelix [Concomitant]
     Indication: Product used for unknown indication
  15. Liprax [Concomitant]
     Indication: Product used for unknown indication
     Dosage: 5/2.5MG X1-2
  16. ONDANSETRON [Concomitant]
     Active Substance: ONDANSETRON
     Indication: Product used for unknown indication
     Dosage: 1-2X1-4
  17. Lopex [Concomitant]
     Indication: Product used for unknown indication
     Dosage: X1-8
  18. LORAZEPAM [Concomitant]
     Active Substance: LORAZEPAM
     Indication: Product used for unknown indication
     Dosage: 1-2TBLX1-2
     Route: 048
  19. Tenox [Concomitant]
     Indication: Product used for unknown indication

REACTIONS (2)
  - Suicide attempt [Recovering/Resolving]
  - Overdose [Recovering/Resolving]

NARRATIVE: CASE EVENT DATE: 20250629
